FAERS Safety Report 9444225 (Version 1)
Quarter: 2013Q3

REPORT INFORMATION
  Report Type: Spontaneous
  Country: US (occurrence: None)
  Receive Date: 20130806
  Receipt Date: 20130806
  Transmission Date: 20140515
  Serious: Yes (Other)
  Sender: FDA-Public Use
  Company Number: None

PATIENT
  Sex: 0

DRUGS (1)
  1. PROLIA [Suspect]

REACTIONS (5)
  - Pain [None]
  - Neck pain [None]
  - Musculoskeletal pain [None]
  - Spinal pain [None]
  - Pain in extremity [None]
